FAERS Safety Report 7833631-7 (Version None)
Quarter: 2011Q4

REPORT INFORMATION
  Report Type: 
  Country: None (occurrence: None)
  Receive Date: 20111024
  Receipt Date: 20111010
  Transmission Date: 20120403
  Serious: Yes (Other)
  Sender: FDA-Public Use
  Company Number: GB-MYLANLABS-2011S1014725

PATIENT
  Age: 61 Year
  Sex: Female

DRUGS (14)
  1. BENDROFLUAZIDE [Concomitant]
     Indication: PRODUCT USED FOR UNKNOWN INDICATION
     Dates: start: 20110113
  2. BISOPROLOL [Suspect]
     Indication: PRODUCT USED FOR UNKNOWN INDICATION
     Dates: start: 20101001, end: 20101006
  3. DILTIAZEM HCL [Suspect]
     Indication: PRODUCT USED FOR UNKNOWN INDICATION
     Route: 048
     Dates: start: 20101006
  4. LOSARTAN POTASSIUM [Concomitant]
     Indication: PRODUCT USED FOR UNKNOWN INDICATION
  5. SIMVASTATIN [Concomitant]
     Indication: PRODUCT USED FOR UNKNOWN INDICATION
     Dates: start: 20090913
  6. DILTIAZEM HCL [Suspect]
     Indication: PRODUCT USED FOR UNKNOWN INDICATION
     Route: 048
     Dates: start: 20101006, end: 20101104
  7. RAMIPRIL [Suspect]
     Indication: BLOOD PRESSURE
     Dates: start: 20101206, end: 20101216
  8. ASPIRIN [Concomitant]
     Indication: PRODUCT USED FOR UNKNOWN INDICATION
     Dates: start: 20101202
  9. INDAPAMIDE [Concomitant]
     Indication: PRODUCT USED FOR UNKNOWN INDICATION
     Dates: start: 20101001
  10. MEBEVERINE [Concomitant]
     Indication: PRODUCT USED FOR UNKNOWN INDICATION
  11. DANDELION [Concomitant]
     Indication: POLYURIA
  12. RAMIPRIL [Suspect]
     Dates: start: 20101118
  13. HERBAL [Concomitant]
     Indication: MIGRAINE
  14. SOTALOL HCL [Concomitant]
     Indication: PRODUCT USED FOR UNKNOWN INDICATION

REACTIONS (7)
  - BLOOD PRESSURE INCREASED [None]
  - VISUAL IMPAIRMENT [None]
  - DIZZINESS [None]
  - NAUSEA [None]
  - DRUG HYPERSENSITIVITY [None]
  - VERTIGO [None]
  - HYPOAESTHESIA [None]
